FAERS Safety Report 6826416 (Version 3)
Quarter: 2025Q1

REPORT INFORMATION
  Report Type: Spontaneous
  Country: ES (occurrence: ES)
  Receive Date: 20081201
  Receipt Date: 20250306
  Transmission Date: 20250409
  Serious: Yes (Hospitalization)
  Sender: PURDUE
  Company Number: ES-PURDUE-GBR_2008_0004638

PATIENT
  Age: 82 Year
  Sex: Female
  Weight: 80 kg

DRUGS (4)
  1. MORPHINE SULFATE [Interacting]
     Active Substance: MORPHINE SULFATE
     Indication: Back pain
     Dosage: 10 MG, DAILY
     Route: 065
  2. GABAPENTIN [Interacting]
     Active Substance: GABAPENTIN
     Indication: Back pain
     Dosage: 600 MG, Q8H
     Route: 065
  3. GABAPENTIN [Interacting]
     Active Substance: GABAPENTIN
     Dosage: 300 MG, Q8H
     Route: 065
  4. GABAPENTIN [Interacting]
     Active Substance: GABAPENTIN
     Dosage: 1200 MG, DAILY
     Route: 065

REACTIONS (7)
  - Drug interaction [Unknown]
  - Psychotic disorder [Recovered/Resolved]
  - Renal impairment [Unknown]
  - Chorea [Recovered/Resolved]
  - Hallucination, visual [Recovered/Resolved]
  - Somnolence [Unknown]
  - Disorientation [Unknown]
